FAERS Safety Report 9846212 (Version 2)
Quarter: 2014Q1

REPORT INFORMATION
  Report Type: Spontaneous
  Country: JP (occurrence: JP)
  Receive Date: 20140127
  Receipt Date: 20140127
  Transmission Date: 20141002
  Serious: Yes (Hospitalization)
  Sender: FDA-Public Use
  Company Number: JP-PFIZER INC-2014013277

PATIENT
  Age: 70 Year
  Sex: Female

DRUGS (9)
  1. SELARA [Suspect]
     Indication: HYPERTENSION
     Dosage: 25 MG, DAILY
     Route: 048
  2. HERBAL PREPARATION [Concomitant]
     Dosage: 1 PACKAGE, 3X/DAY
     Route: 048
  3. AMLODIN [Concomitant]
     Indication: HYPERTENSION
     Dosage: 5 MG, 1X/DAY
     Route: 048
  4. VESICARE [Concomitant]
     Dosage: 5 MG, 2X/DAY
     Route: 048
  5. GLACTIV [Concomitant]
     Dosage: 50 MG, 1X/DAY
     Route: 048
  6. MAINTATE [Concomitant]
     Dosage: 0.625 MG, 1X/DAY
     Route: 048
  7. YODEL S [Concomitant]
     Dosage: 160 MG, 1X/DAY
     Route: 048
  8. HALCION [Concomitant]
     Dosage: 0.5 MG, DAILY
     Route: 048
  9. LANTUS [Concomitant]
     Indication: DIABETES MELLITUS
     Dosage: 12 IU, 1X/DAY
     Route: 042
     Dates: start: 20140115

REACTIONS (1)
  - Vitreous disorder [Recovered/Resolved]
